FAERS Safety Report 6593507-2 (Version None)
Quarter: 2010Q1

REPORT INFORMATION
  Report Type: 
  Country: None (occurrence: None)
  Receive Date: 20100222
  Receipt Date: 20090610
  Transmission Date: 20100710
  Serious: No
  Sender: FDA-Public Use
  Company Number: US-BRISTOL-MYERS SQUIBB COMPANY-14658355

PATIENT
  Age: 63 Year
  Sex: Female
  Weight: 86 kg

DRUGS (11)
  1. ORENCIA [Suspect]
     Indication: RHEUMATOID ARTHRITIS
     Dosage: FIRST INFUSION,NEXT INFUSION ON 12JUN09
     Dates: start: 20090529
  2. GLIPIZIDE [Concomitant]
  3. BENAZEPRIL HYDROCHLORIDE [Concomitant]
  4. ARAVA [Concomitant]
  5. FOLIC ACID [Concomitant]
  6. PLAQUENIL [Concomitant]
  7. TUMS [Concomitant]
  8. METHOTREXATE [Concomitant]
  9. SULFASALAZINE [Concomitant]
  10. OMEPRAZOLE [Concomitant]
  11. FOSAMAX [Concomitant]

REACTIONS (3)
  - DIZZINESS [None]
  - NAUSEA [None]
  - VOMITING [None]
